FAERS Safety Report 15457180 (Version 1)
Quarter: 2018Q4

REPORT INFORMATION
  Report Type: Spontaneous
  Country: US (occurrence: US)
  Receive Date: 20181002
  Receipt Date: 20181002
  Transmission Date: 20190204
  Serious: No
  Sender: FDA-Public Use
  Company Number: US-SOMERSET-2018-US-000015

PATIENT
  Age: 65 Year
  Sex: Female

DRUGS (2)
  1. CYANOCOBALAMIN INJECTION - 1ML [Suspect]
     Active Substance: CYANOCOBALAMIN
     Dates: start: 20180801
  2. PREDNISONE. [Concomitant]
     Active Substance: PREDNISONE

REACTIONS (6)
  - Rash [Recovered/Resolved]
  - Cognitive disorder [Recovered/Resolved]
  - Muscular weakness [Recovered/Resolved]
  - Chest discomfort [Recovered/Resolved]
  - Pruritus [Recovered/Resolved]
  - Dyspnoea [Recovered/Resolved]
